FAERS Safety Report 4700843-0 (Version None)
Quarter: 2005Q2

REPORT INFORMATION
  Report Type: 
  Country: None (occurrence: None)
  Receive Date: 20050209
  Receipt Date: 20050209
  Transmission Date: 20051028
  Serious: No
  Sender: FDA-Public Use
  Company Number: None

PATIENT
  Sex: Female
  Weight: 78.4723 kg

DRUGS (2)
  1. VICODIN [Suspect]
     Indication: OSTEOARTHRITIS
     Dosage: 5-500 MG ONE BID
  2. VICODIN [Suspect]
     Indication: PAIN
     Dosage: 5-500 MG ONE BID

REACTIONS (2)
  - DRUG EFFECT DECREASED [None]
  - THERAPEUTIC RESPONSE UNEXPECTED WITH DRUG SUBSTITUTION [None]
